FAERS Safety Report 13688297 (Version 1)
Quarter: 2017Q2

REPORT INFORMATION
  Report Type: Spontaneous
  Country: US (occurrence: US)
  Receive Date: 20170626
  Receipt Date: 20170626
  Transmission Date: 20170830
  Serious: No
  Sender: FDA-Public Use
  Company Number: US-TEVA-730784ACC

PATIENT
  Sex: Female
  Weight: 61.74 kg

DRUGS (1)
  1. LAMOTRIGINE. [Suspect]
     Active Substance: LAMOTRIGINE
     Indication: BIPOLAR DISORDER

REACTIONS (14)
  - Anger [Unknown]
  - Tremor [Unknown]
  - Musculoskeletal stiffness [Unknown]
  - Insomnia [Unknown]
  - Memory impairment [Unknown]
  - Diplopia [Unknown]
  - Myalgia [Unknown]
  - Hypoaesthesia [Unknown]
  - Dizziness [Unknown]
  - Hypoaesthesia oral [Unknown]
  - Dysstasia [Unknown]
  - Aggression [Unknown]
  - Impaired driving ability [Unknown]
  - Rhinorrhoea [Unknown]
